FAERS Safety Report 6521820-3 (Version None)
Quarter: 2009Q4

REPORT INFORMATION
  Report Type: 
  Country: None (occurrence: None)
  Receive Date: 20091222
  Receipt Date: 20091218
  Transmission Date: 20100525
  Serious: No
  Sender: FDA-Public Use
  Company Number: 2009029761

PATIENT
  Age: 51 Year
  Sex: Female

DRUGS (3)
  1. FENTORA [Suspect]
     Indication: PANCREATITIS CHRONIC
     Dosage: 2400 MCG (800 MCG, 3 IN 1 D), BU
     Route: 002
     Dates: start: 20070501
  2. DURAGESIC PATCH (FENTANYL) (100 MICROGRAM, TRANSDERMAL PATCH) [Concomitant]
  3. METHADONE (METHADONE)(10 MILLIGRAM, TABLET) [Concomitant]

REACTIONS (2)
  - DENTAL CARIES [None]
  - DRUG PRESCRIBING ERROR [None]
